FAERS Safety Report 8835482 (Version 1)
Quarter: 2012Q4

REPORT INFORMATION
  Report Type: 
  Country: US (occurrence: US)
  Receive Date: 20121011
  Receipt Date: 20121011
  Transmission Date: 20130627
  Serious: Yes (Other)
  Sender: FDA-Public Use
  Company Number: PHEH2012US019843

PATIENT
  Sex: Male
  Weight: 111.11 kg

DRUGS (7)
  1. ZOMETA [Suspect]
     Dosage: UNK UKN, UNK
  2. ACYCLOVIR [Concomitant]
     Dosage: UNK UKN, UNK
  3. MULTIVITAMINS [Concomitant]
     Dosage: UNK UKN, UNK
  4. REVLIMID [Concomitant]
     Dosage: UNK UKN, UNK
  5. TRAMADOL [Concomitant]
     Dosage: UNK UKN, UNK
  6. VITAMIN D [Concomitant]
     Dosage: UNK UKN, UNK
  7. KRILL OIL [Concomitant]

REACTIONS (3)
  - Breast enlargement [Unknown]
  - Prostatomegaly [Unknown]
  - Prostatic specific antigen increased [Unknown]
